FAERS Safety Report 4840530-1 (Version None)
Quarter: 2005Q4

REPORT INFORMATION
  Report Type: 
  Country: None (occurrence: None)
  Receive Date: 20051130
  Receipt Date: 20050921
  Transmission Date: 20060501
  Serious: No
  Sender: FDA-Public Use
  Company Number: US-BRISTOL-MYERS SQUIBB COMPANY-13118187

PATIENT
  Age: 91 Year
  Sex: Male
  Weight: 73 kg

DRUGS (2)
  1. ERBITUX [Suspect]
     Indication: COLON CANCER
     Dates: start: 20050101
  2. BENADRYL [Concomitant]
     Indication: PREMEDICATION
     Route: 042

REACTIONS (1)
  - DERMATITIS ACNEIFORM [None]
